FAERS Safety Report 8434227-9 (Version None)
Quarter: 2012Q2

REPORT INFORMATION
  Report Type: 
  Country: None (occurrence: None)
  Receive Date: 20120613
  Receipt Date: 20120611
  Transmission Date: 20120825
  Serious: Yes (Hospitalization, Other)
  Sender: FDA-Public Use
  Company Number: PHHY2012BR020265

PATIENT
  Sex: Male
  Weight: 96 kg

DRUGS (6)
  1. AMIODARONE HYDROCHLORIDE [Concomitant]
     Dosage: 200 MG, UNK
     Route: 048
  2. DOXAZOSIN MESYLATE [Suspect]
     Indication: PROSTATECTOMY
     Dosage: 1 DF, QD
     Route: 048
     Dates: start: 20120228, end: 20120305
  3. CEFACLOR [Concomitant]
  4. DIAMICRON [Concomitant]
     Indication: DIABETES MELLITUS
     Dosage: 30 MG, UNK
     Route: 048
  5. NAPRIX [Concomitant]
     Indication: BLOOD PRESSURE
     Dosage: 10 MG, UNK
     Route: 048
  6. CARVEDILOL [Concomitant]
     Indication: BLOOD PRESSURE
     Dosage: 12.5 MG, UNK
     Route: 048

REACTIONS (6)
  - BACK PAIN [None]
  - POLYMYOSITIS [None]
  - GAIT DISTURBANCE [None]
  - MYALGIA [None]
  - FLUID RETENTION [None]
  - SWELLING [None]
